FAERS Safety Report 7879069-8 (Version None)
Quarter: 2011Q4

REPORT INFORMATION
  Report Type: 
  Country: None (occurrence: None)
  Receive Date: 20111101
  Receipt Date: 20111027
  Transmission Date: 20120403
  Serious: Yes (Hospitalization, Other)
  Sender: FDA-Public Use
  Company Number: PHHY2011NL83613

PATIENT
  Sex: Female

DRUGS (3)
  1. ZOMETA [Suspect]
     Indication: LUNG CANCER METASTATIC
     Dosage: 4 MG /5 ML ONCE PER 42 DAYS
     Dates: start: 20110223
  2. ZOMETA [Suspect]
     Dosage: 4 MG /5 ML ONCE PER 42 DAYS
     Dates: start: 20110921
  3. ZOMETA [Suspect]
     Dosage: 4 MG /5 ML ONCE PER 42 DAYS
     Dates: start: 20110810

REACTIONS (3)
  - BONE PAIN [None]
  - FALL [None]
  - HAEMATOMA [None]
